FAERS Safety Report 4988416-6 (Version None)
Quarter: 2006Q2

REPORT INFORMATION
  Report Type: 
  Country: None (occurrence: None)
  Receive Date: 20060426
  Receipt Date: 20060417
  Transmission Date: 20061013
  Serious: Yes (Other)
  Sender: FDA-Public Use
  Company Number: 2006051790

PATIENT
  Age: 18 Year
  Sex: Female
  Weight: 49.8957 kg

DRUGS (1)
  1. BENADRYL [Suspect]
     Indication: INTENTIONAL DRUG MISUSE
     Dosage: 15-20 KAPSELS PER DAY, ORAL
     Route: 048
     Dates: start: 20060201, end: 20060401

REACTIONS (4)
  - HEADACHE [None]
  - HOT FLUSH [None]
  - INTENTIONAL DRUG MISUSE [None]
  - NAUSEA [None]
